FAERS Safety Report 8966584 (Version 1)
Quarter: 2012Q4

REPORT INFORMATION
  Report Type: 
  Country: US (occurrence: US)
  Receive Date: 20121217
  Receipt Date: 20121217
  Transmission Date: 20130627
  Serious: Yes (Death, Life-Threatening, Hospitalization, Other)
  Sender: FDA-Public Use
  Company Number: US-ELI_LILLY_AND_COMPANY-US201212003514

PATIENT
  Sex: Female

DRUGS (13)
  1. BYETTA [Suspect]
     Dosage: 10 ug, bid
  2. HYDROXYZINE [Concomitant]
     Dosage: 50 mg, qid
  3. BUMEX [Concomitant]
     Dosage: 1 mg, UNK
  4. SPIRONOLACTONE [Concomitant]
     Dosage: 25 mg, bid
  5. MS CONTIN [Concomitant]
     Dosage: 15 mg, UNK
  6. PROMETHAZINE [Concomitant]
     Dosage: 25 mg, qd
  7. URSO [Concomitant]
     Dosage: 900 mg, tid
  8. PREVACID [Concomitant]
  9. NOVOLOG MIX 70/30 [Concomitant]
     Dosage: 30 u, qd
     Route: 058
  10. LACTULOSE [Concomitant]
     Dosage: 1 DF, tid
  11. POTASSIUM [Concomitant]
     Dosage: 20 mEq, qd
  12. FOLIC ACID [Concomitant]
     Dosage: 1 mg, qd
  13. XIFAXAN [Concomitant]
     Dosage: 400 mg, bid

REACTIONS (4)
  - Death [Fatal]
  - Acute respiratory failure [Unknown]
  - Pancreatitis [Recovering/Resolving]
  - Renal failure [Unknown]
